FAERS Safety Report 21186104 (Version 3)
Quarter: 2022Q3

REPORT INFORMATION
  Report Type: Report from Study
  Country: AU (occurrence: AU)
  Receive Date: 20220808
  Receipt Date: 20220824
  Transmission Date: 20221027
  Serious: Yes (Hospitalization)
  Sender: FDA-Public Use
  Company Number: AU-PFIZER INC-PV202200032234

PATIENT
  Age: 70 Year
  Sex: Female
  Weight: 90.1 kg

DRUGS (11)
  1. AVASTIN [Suspect]
     Active Substance: BEVACIZUMAB
     Indication: Colorectal cancer metastatic
     Dosage: 500 MG, EVERY 2 WEEKS
     Route: 042
     Dates: start: 20220405
  2. LEUCOVORIN [Suspect]
     Active Substance: LEUCOVORIN
     Indication: Colorectal cancer metastatic
     Dosage: 840 MG, EVERY 2 WEEKS
     Route: 042
     Dates: start: 20220405
  3. FLUOROURACIL [Suspect]
     Active Substance: FLUOROURACIL
     Indication: Colorectal cancer metastatic
     Dosage: DOSE FOR IV BOLUS: 850 MG, EVERY 2 WEEKS
     Route: 040
     Dates: start: 20220405
  4. FLUOROURACIL [Suspect]
     Active Substance: FLUOROURACIL
     Dosage: DOSE FOR IV INFUSION: 5000 MG, EVERY 2 WEEKS
     Route: 042
     Dates: start: 20220405
  5. OXALIPLATIN [Suspect]
     Active Substance: OXALIPLATIN
     Indication: Colorectal cancer metastatic
     Dosage: 135 MG, EVERY 2 WEEKS
     Route: 042
     Dates: start: 20220405
  6. DEXAMETHASONE [Concomitant]
     Active Substance: DEXAMETHASONE
     Indication: Prophylaxis
     Dosage: 8 MG, DAY 2, DAY 3
     Route: 048
     Dates: start: 20220405
  7. DEXAMETHASONE [Concomitant]
     Active Substance: DEXAMETHASONE
     Indication: Premedication
     Dosage: 8 MG, PRN
     Route: 048
     Dates: start: 20220405
  8. METOCLOPRAMIDE [Concomitant]
     Active Substance: METOCLOPRAMIDE
     Indication: Prophylaxis
     Dosage: 10 MG, PRN
     Route: 048
     Dates: start: 20220405
  9. LOPERAMIDE [Concomitant]
     Active Substance: LOPERAMIDE
     Indication: Prophylaxis
     Dosage: 2 MG, PRN
     Route: 048
     Dates: start: 20220405
  10. NETUPITANT [Concomitant]
     Active Substance: NETUPITANT
     Indication: Premedication
     Dosage: 300 MG, PRN
     Route: 048
     Dates: start: 20220405
  11. PALONOSETRON [Concomitant]
     Active Substance: PALONOSETRON
     Indication: Premedication
     Dosage: 500 UG, PRN
     Route: 048
     Dates: start: 20220405

REACTIONS (1)
  - Acute kidney injury [Recovered/Resolved]

NARRATIVE: CASE EVENT DATE: 20220727
